FAERS Safety Report 9495659 (Version 1)
Quarter: 2013Q3

REPORT INFORMATION
  Report Type: Spontaneous
  Country: GB (occurrence: GB)
  Receive Date: 20130903
  Receipt Date: 20130903
  Transmission Date: 20140515
  Serious: Yes (Life-Threatening, Hospitalization)
  Sender: FDA-Public Use
  Company Number: PHHY2013GB094038

PATIENT
  Age: 86 Year
  Sex: Female

DRUGS (4)
  1. CLOPIDOGREL [Suspect]
     Indication: PERCUTANEOUS CORONARY INTERVENTION
     Dosage: 300 MG,
     Route: 048
     Dates: start: 20130808, end: 20130809
  2. CLOPIDOGREL [Suspect]
     Dosage: 75 MG, QD
     Route: 048
     Dates: start: 20130810, end: 20130815
  3. ACETYLSALICYLIC ACID [Suspect]
     Indication: PERCUTANEOUS CORONARY INTERVENTION
     Dosage: 75 MG, QD HAD BEEN STOPPED PRIOR TO SURGERY- RE STARTED 31 JUL 2013
     Route: 048
     Dates: start: 20130731
  4. APIXABAN [Suspect]
     Indication: THROMBOSIS PROPHYLAXIS
     Dosage: 2.5 MG, BID
     Route: 048
     Dates: start: 20130731, end: 20130816

REACTIONS (2)
  - Gastric haemorrhage [Not Recovered/Not Resolved]
  - Haemoglobin decreased [Unknown]
